FAERS Safety Report 4408248-7 (Version None)
Quarter: 2004Q3

REPORT INFORMATION
  Report Type: 
  Country: None (occurrence: None)
  Receive Date: 20040726
  Receipt Date: 20040726
  Transmission Date: 20050211
  Serious: Yes (Hospitalization)
  Sender: FDA-Public Use
  Company Number: None

PATIENT
  Age: 57 Year
  Sex: Female
  Weight: 57.1532 kg

DRUGS (9)
  1. SANDOSTATIN [Suspect]
     Indication: SMALL INTESTINAL OBSTRUCTION
     Dosage: 100 MCG   TID  SUBCUTANEOUS
     Route: 058
     Dates: start: 20040702, end: 20040714
  2. SANDOSTATIN [Suspect]
     Indication: SMALL INTESTINAL OBSTRUCTION
     Dosage: 30MG  Q MONTH  INTRAMUSCULAR
     Route: 030
     Dates: start: 20040702, end: 20040702
  3. OXYCONTIN [Concomitant]
  4. OXYCODONE HCL [Concomitant]
  5. MIRALAX [Concomitant]
  6. FENTANYL [Concomitant]
  7. ONDANSETRON HCL [Concomitant]
  8. HEPARIN [Concomitant]
  9. IV FLUIDS [Concomitant]

REACTIONS (2)
  - LARGE INTESTINAL OBSTRUCTION [None]
  - OEDEMA [None]
